FAERS Safety Report 19001814 (Version 1)
Quarter: 2021Q1

REPORT INFORMATION
  Report Type: Spontaneous
  Country: US (occurrence: US)
  Receive Date: 20210311
  Receipt Date: 20210311
  Transmission Date: 20210420
  Serious: Yes (Death)
  Sender: FDA-Public Use
  Company Number: None

PATIENT
  Age: 86 Year

DRUGS (1)
  1. REVLIMID [Suspect]
     Active Substance: LENALIDOMIDE
     Indication: PLASMA CELL MYELOMA
     Route: 048
     Dates: start: 20170117, end: 20210116

REACTIONS (3)
  - Oesophageal ulcer haemorrhage [None]
  - Device failure [None]
  - Post procedural haemorrhage [None]

NARRATIVE: CASE EVENT DATE: 20210210
